FAERS Safety Report 9562788 (Version 1)
Quarter: 2013Q3

REPORT INFORMATION
  Report Type: Spontaneous
  Country: FR (occurrence: FR)
  Receive Date: 20130927
  Receipt Date: 20130927
  Transmission Date: 20140515
  Serious: Yes (Life-Threatening)
  Sender: FDA-Public Use
  Company Number: FR-BRISTOL-MYERS SQUIBB COMPANY-19434521

PATIENT
  Age: 57 Year
  Sex: Male

DRUGS (6)
  1. REYATAZ CAPS 300 MG [Suspect]
     Indication: HIV INFECTION
     Route: 048
     Dates: start: 20070122, end: 20130319
  2. TRUVADA [Suspect]
     Indication: HIV INFECTION
     Dosage: 1DF: 200 MG/245 MG FILM COATED TABLET
     Route: 048
     Dates: start: 20061120, end: 20130319
  3. RAMIPRIL [Suspect]
     Indication: HYPERTENSION
     Route: 048
     Dates: end: 20130319
  4. NORVIR [Suspect]
     Route: 048
  5. DITROPAN [Concomitant]
  6. DAFLON [Concomitant]
     Route: 048

REACTIONS (1)
  - Renal failure acute [Recovered/Resolved]
